FAERS Safety Report 18362685 (Version 1)
Quarter: 2020Q4

REPORT INFORMATION
  Report Type: Spontaneous
  Country: IT (occurrence: IT)
  Receive Date: 20201009
  Receipt Date: 20201009
  Transmission Date: 20210114
  Serious: Yes (Other)
  Sender: FDA-Public Use
  Company Number: IT-AMGEN-ITASP2020162334

PATIENT
  Age: 81 Year
  Sex: Male
  Weight: 69 kg

DRUGS (4)
  1. FLUOROURACILE TEVA [Suspect]
     Active Substance: FLUOROURACIL
     Indication: COLON CANCER METASTATIC
     Dosage: 3750 MILLIGRAM, CYCLICAL (1G/20 ML)
     Route: 042
     Dates: start: 20200513, end: 20200923
  2. OXALIPLATINO TEVA [Suspect]
     Active Substance: OXALIPLATIN
     Indication: COLON CANCER METASTATIC
     Dosage: 120 MILLIGRAM, CYCLICAL
     Route: 042
     Dates: start: 20200513, end: 20200923
  3. PANITUMUMAB [Suspect]
     Active Substance: PANITUMUMAB
     Indication: COLON CANCER METASTATIC
     Dosage: 400 MILLIGRAM, CYCLICAL
     Route: 042
     Dates: start: 20200624, end: 20200923
  4. FLUOROURACILE TEVA [Suspect]
     Active Substance: FLUOROURACIL
     Dosage: 600 MILLIGRAM, CYCLICAL
     Route: 040
     Dates: start: 20200513, end: 20200923

REACTIONS (1)
  - Thrombocytopenia [Recovered/Resolved]

NARRATIVE: CASE EVENT DATE: 20200914
